FAERS Safety Report 5079363-2 (Version None)
Quarter: 2006Q3

REPORT INFORMATION
  Report Type: 
  Country: None (occurrence: None)
  Receive Date: 20060809
  Receipt Date: 20060728
  Transmission Date: 20061208
  Serious: Yes (Hospitalization)
  Sender: FDA-Public Use
  Company Number: 234695K06USA

PATIENT
  Age: 55 Year
  Sex: Male

DRUGS (6)
  1. REBIF [Suspect]
     Indication: MULTIPLE SCLEROSIS
     Dosage: 44 MCG, 3 IN 1 WEEKS, SUBCUTANEOUS
     Route: 058
     Dates: start: 20051005
  2. ALBUTEROL INHALER (SALBUTAMOL /00139501/) [Concomitant]
  3. ALLEGRA [Concomitant]
  4. SEREVENT [Concomitant]
  5. FLOVENT [Concomitant]
  6. CIALIS [Concomitant]

REACTIONS (4)
  - ASTHMA [None]
  - CONDITION AGGRAVATED [None]
  - DRUG INEFFECTIVE [None]
  - RESPIRATORY ARREST [None]
